FAERS Safety Report 23409443 (Version 2)
Quarter: 2024Q1

REPORT INFORMATION
  Report Type: Spontaneous
  Country: ES (occurrence: ES)
  Receive Date: 20240117
  Receipt Date: 20240321
  Transmission Date: 20240409
  Serious: Yes (Other)
  Sender: FDA-Public Use
  Company Number: ES-SUN PHARMACEUTICAL INDUSTRIES LTD-2024RR-426511

PATIENT
  Age: 49 Year
  Sex: Male

DRUGS (3)
  1. EPOPROSTENOL [Suspect]
     Active Substance: EPOPROSTENOL
     Indication: Respiratory failure
     Dosage: TITRATED UP TO 9 NG/KG/MIN
     Route: 042
  2. SILDENAFIL [Concomitant]
     Active Substance: SILDENAFIL
     Indication: Product used for unknown indication
     Dosage: 40 MILLIGRAM, TID
     Route: 065
  3. MACITENTAN [Concomitant]
     Active Substance: MACITENTAN
     Indication: Product used for unknown indication
     Dosage: 10 MILLIGRAM, QD
     Route: 065

REACTIONS (2)
  - Disease progression [Recovered/Resolved]
  - Pulmonary hypertension [Recovered/Resolved]
